FAERS Safety Report 6871629-6 (Version None)
Quarter: 2010Q3

REPORT INFORMATION
  Report Type: 
  Country: None (occurrence: None)
  Receive Date: 20100723
  Receipt Date: 20100712
  Transmission Date: 20110219
  Serious: Yes (Other)
  Sender: FDA-Public Use
  Company Number: US-PFIZER INC-2010040533

PATIENT
  Sex: Female

DRUGS (20)
  1. CHANTIX [Suspect]
     Indication: SMOKING CESSATION THERAPY
     Dosage: UNK
     Dates: start: 20060901, end: 20071001
  2. NEXIUM [Concomitant]
     Indication: GASTROOESOPHAGEAL REFLUX DISEASE
     Dosage: UNK
     Dates: start: 19960101
  3. LIPITOR [Concomitant]
     Indication: BLOOD CHOLESTEROL INCREASED
     Dosage: UNK
     Dates: start: 20000101
  4. TOPIRAMATE [Concomitant]
     Indication: MIGRAINE
     Dosage: UNK
     Dates: start: 19950101
  5. TOPROL-XL [Concomitant]
     Indication: HEART RATE
     Dosage: UNK
     Dates: start: 20010101
  6. FELDENE [Concomitant]
     Indication: ARTHRALGIA
     Dosage: UNK
     Dates: start: 19990101
  7. DESOGESTREL AND ETHINYL ESTRADIOL [Concomitant]
     Indication: CONTRACEPTION
     Dosage: UNK
     Dates: start: 19800101
  8. ADVAIR DISKUS 100/50 [Concomitant]
     Indication: ASTHMA
     Dosage: UNK
     Dates: start: 19880101
  9. IMIPRAMINE [Concomitant]
     Indication: DEPRESSION
     Dosage: UNK
     Dates: start: 19980101
  10. SINGULAIR ^DIECKMANN^ [Concomitant]
     Indication: SINUSITIS
     Dosage: UNK
     Dates: start: 19980101
  11. NITROGLYCERIN [Concomitant]
     Indication: CARDIAC DISORDER
     Dosage: UNK
     Dates: start: 20010101
  12. VERAMYST [Concomitant]
     Indication: SINUSITIS
     Dosage: UNK
     Dates: start: 20040101
  13. CLORAZEPATE DIPOTASSIUM [Concomitant]
     Indication: ANXIETY
     Dosage: UNK
     Dates: start: 20040101
  14. COMBIVENT [Concomitant]
     Indication: EMPHYSEMA
     Dosage: UNK
     Dates: start: 20040101
  15. SPIRIVA [Concomitant]
     Indication: EMPHYSEMA
     Dosage: UNK
     Dates: start: 20030101
  16. AMITRIPTYLINE HYDROCHLORIDE [Concomitant]
     Indication: DEPRESSION
     Dosage: UNK
     Dates: start: 20030101, end: 20080101
  17. BUSPIRONE [Concomitant]
     Indication: ANXIETY
     Dosage: UNK
     Dates: start: 20040101, end: 20090101
  18. CARAFATE [Concomitant]
     Indication: GASTRIC ULCER
     Dosage: UNK
     Dates: start: 20040101, end: 20070101
  19. METOCLOPRAMIDE [Concomitant]
     Indication: GASTROOESOPHAGEAL REFLUX DISEASE
     Dosage: UNK
     Dates: start: 20040101, end: 20080101
  20. CLARINEX [Concomitant]
     Indication: HYPERSENSITIVITY
     Dosage: UNK
     Dates: start: 20050101, end: 20080101

REACTIONS (7)
  - ANXIETY [None]
  - MAJOR DEPRESSION [None]
  - MENTAL DISORDER [None]
  - MIGRAINE [None]
  - NIGHTMARE [None]
  - PANIC DISORDER [None]
  - SUICIDAL IDEATION [None]
